FAERS Safety Report 9177181 (Version 2)
Quarter: 2013Q2

REPORT INFORMATION
  Report Type: Spontaneous
  Country: US (occurrence: US)
  Receive Date: 20130321
  Receipt Date: 20130426
  Transmission Date: 20140414
  Serious: No
  Sender: FDA-Public Use
  Company Number: US-VERTEX PHARMACEUTICALS INC.-2013-003839

PATIENT
  Age: 49 Year
  Sex: Female
  Weight: 82 kg

DRUGS (13)
  1. INCIVEK [Suspect]
     Indication: HEPATITIS C
     Dosage: 750 MG, TID
     Route: 048
     Dates: start: 20130309, end: 20130316
  2. RIBAVIRIN [Suspect]
     Indication: HEPATITIS C
     Dosage: 2 DF, BID
     Route: 048
     Dates: start: 20130309, end: 20130316
  3. PEGASYS [Suspect]
     Indication: HEPATITIS C
     Dosage: 180 ?G, QW
     Route: 058
     Dates: start: 20130309, end: 20130316
  4. LORTAB [Concomitant]
     Indication: PAIN
  5. FENTANYL [Concomitant]
     Indication: PAIN
     Route: 062
  6. NEURONTIN [Concomitant]
  7. ZOFRAN [Concomitant]
  8. BACLOFEN [Concomitant]
  9. TENORMIN [Concomitant]
  10. LISINOPRIL [Concomitant]
  11. NORCO [Concomitant]
  12. PAXIL [Concomitant]
  13. PROTONIX [Concomitant]

REACTIONS (3)
  - Pyrexia [Recovered/Resolved]
  - Headache [Recovered/Resolved]
  - Somnolence [Recovered/Resolved]
